FAERS Safety Report 9503724 (Version 1)
Quarter: 2013Q1

REPORT INFORMATION
  Report Type: Spontaneous
  Country: US (occurrence: None)
  Receive Date: 20130130
  Receipt Date: 20130130
  Transmission Date: 20140127
  Serious: Yes (Other)
  Sender: FDA-Public Use
  Company Number: US201211008676

PATIENT
  Age: 52 Year
  Sex: Female

DRUGS (2)
  1. BYDUREON [Suspect]
     Dosage: (1/W)
     Route: 058
     Dates: start: 2012
  2. BYETTA (EXENATIDE) PEN, DISPOSABLE [Suspect]
     Route: 058

REACTIONS (1)
  - Pancreatitis [None]
